FAERS Safety Report 8861572 (Version 1)
Quarter: 2012Q4

REPORT INFORMATION
  Report Type: Spontaneous
  Country: US (occurrence: None)
  Receive Date: 20121025
  Receipt Date: 20121025
  Transmission Date: 20130627
  Serious: Yes (Hospitalization, Other)
  Sender: FDA-Public Use
  Company Number: None

PATIENT
  Age: 84 Year
  Sex: Female

DRUGS (1)
  1. WARFARIN [Suspect]
     Dosage: 1.5 mg and 3 mg alternati

REACTIONS (4)
  - Haemorrhage [None]
  - International normalised ratio increased [None]
  - Gastrointestinal haemorrhage [None]
  - Toxicity to various agents [None]
